FAERS Safety Report 5821989-X (Version None)
Quarter: 2008Q3

REPORT INFORMATION
  Report Type: 
  Country: None (occurrence: None)
  Receive Date: 20080724
  Receipt Date: 20080714
  Transmission Date: 20090109
  Serious: Yes (Hospitalization, Disabling, Other)
  Sender: FDA-Public Use
  Company Number: US-MERCK-0608USA05914

PATIENT
  Age: 43 Year
  Sex: Female
  Weight: 53 kg

DRUGS (4)
  1. SINGULAIR [Suspect]
     Indication: HYPERSENSITIVITY
     Route: 048
     Dates: start: 20060803, end: 20060810
  2. SINGULAIR [Suspect]
     Indication: ASTHMA
     Route: 048
     Dates: start: 20060803, end: 20060810
  3. FLONASE [Concomitant]
     Route: 065
  4. RISPERDAL [Concomitant]
     Route: 065
     Dates: start: 20060810

REACTIONS (2)
  - ABASIA [None]
  - PSYCHOTIC DISORDER [None]
